FAERS Safety Report 16091215 (Version 2)
Quarter: 2019Q2

REPORT INFORMATION
  Report Type: Spontaneous
  Country: ES (occurrence: ES)
  Receive Date: 20190319
  Receipt Date: 20190520
  Transmission Date: 20190711
  Serious: Yes (Death, Other)
  Sender: FDA-Public Use
  Company Number: ES-BAYER-2019-022116

PATIENT
  Age: 62 Year

DRUGS (1)
  1. STIVARGA [Suspect]
     Active Substance: REGORAFENIB
     Indication: METASTASES TO LIVER
     Dosage: IN THE FORTH LINE
     Dates: start: 201407

REACTIONS (3)
  - Asthenia [None]
  - Disease progression [None]
  - Metastases to lung [None]
